FAERS Safety Report 25946035 (Version 1)
Quarter: 2025Q4

REPORT INFORMATION
  Report Type: Report from Study
  Country: EU (occurrence: EU)
  Receive Date: 20251021
  Receipt Date: 20251021
  Transmission Date: 20260117
  Serious: Yes (Death)
  Sender: ABBVIE
  Company Number: EU-ABBVIE-6511174

PATIENT
  Age: 87 Year
  Sex: Female

DRUGS (3)
  1. CARBIDOPA [Suspect]
     Active Substance: CARBIDOPA
     Indication: Parkinson^s disease
     Route: 050
     Dates: start: 20140220, end: 20251015
  2. CARBIDOPA [Suspect]
     Active Substance: CARBIDOPA
  3. Retard [Concomitant]
     Indication: Product used for unknown indication

REACTIONS (1)
  - Death [Fatal]

NARRATIVE: CASE EVENT DATE: 20251015
